FAERS Safety Report 9264480 (Version 3)
Quarter: 2014Q1

REPORT INFORMATION
  Report Type: Report from Study
  Country: CA (occurrence: CA)
  Receive Date: 20130501
  Receipt Date: 20140310
  Transmission Date: 20141002
  Serious: Yes (Other)
  Sender: FDA-Public Use
  Company Number: CA-ROCHE-1094449

PATIENT
  Age: 58 Year
  Sex: Female
  Weight: 58 kg

DRUGS (2)
  1. AVASTIN [Suspect]
     Indication: OVARIAN CANCER
     Dosage: LAST DOSE ADMINISTERED : 03/APR/2013
     Route: 042
     Dates: start: 20111109
  2. AVASTIN [Suspect]
     Dosage: THIRD INFUSION
     Route: 042
     Dates: start: 20111221

REACTIONS (5)
  - Hypertensive crisis [Unknown]
  - Carbohydrate antigen 125 increased [Unknown]
  - Proteinuria [Not Recovered/Not Resolved]
  - Protein urine present [Not Recovered/Not Resolved]
  - Protein urine [Not Recovered/Not Resolved]
